FAERS Safety Report 17439903 (Version 1)
Quarter: 2020Q1

REPORT INFORMATION
  Report Type: Spontaneous
  Country: US (occurrence: US)
  Receive Date: 20200220
  Receipt Date: 20200220
  Transmission Date: 20200409
  Serious: Yes (Death, Hospitalization)
  Sender: FDA-Public Use
  Company Number: US-MYLANLABS-2020M1018815

PATIENT
  Age: 81 Year
  Sex: Male

DRUGS (2)
  1. LEVETIRACETAM. [Suspect]
     Active Substance: LEVETIRACETAM
     Indication: PRODUCT USED FOR UNKNOWN INDICATION
     Dosage: INGESTED ~75 TABLETS OF LACOSAMIDE AND LEVETIRACETAM
     Route: 048
  2. LACOSAMIDE. [Suspect]
     Active Substance: LACOSAMIDE
     Indication: PRODUCT USED FOR UNKNOWN INDICATION
     Dosage: INGESTED ~75 TABLETS OF LACOSAMIDE AND LEVETIRACETAM
     Route: 048

REACTIONS (7)
  - Atrioventricular block complete [Fatal]
  - Toxicity to various agents [Fatal]
  - Seizure [Fatal]
  - Completed suicide [Fatal]
  - Ventricular tachycardia [Fatal]
  - Bradycardia [Fatal]
  - Intentional overdose [Fatal]
